FAERS Safety Report 9819841 (Version 1)
Quarter: 2013Q4

REPORT INFORMATION
  Report Type: Spontaneous
  Country: US (occurrence: None)
  Receive Date: 20131223
  Receipt Date: 20131223
  Transmission Date: 20140711
  Serious: No
  Sender: FDA-Public Use
  Company Number: 221029

PATIENT
  Age: 59 Year
  Sex: Female

DRUGS (1)
  1. PICATO [Suspect]
     Indication: ACTINIC KERATOSIS
     Dates: start: 20130317, end: 20130319

REACTIONS (4)
  - Application site dryness [None]
  - Application site vesicles [None]
  - Application site scab [None]
  - Drug administered at inappropriate site [None]
